FAERS Safety Report 21873326 (Version 1)
Quarter: 2023Q1

REPORT INFORMATION
  Report Type: Spontaneous
  Country: US (occurrence: None)
  Receive Date: 20230116
  Receipt Date: 20230116
  Transmission Date: 20230417
  Serious: Yes (Life-Threatening, Hospitalization, Disabling)
  Sender: FDA-Public Use
  Company Number: None

PATIENT
  Age: 27 Year
  Sex: Female
  Weight: 59.87 kg

DRUGS (1)
  1. NEXPLANON [Suspect]
     Active Substance: ETONOGESTREL

REACTIONS (9)
  - Vision blurred [None]
  - Asthenia [None]
  - Hypoaesthesia [None]
  - Confusional state [None]
  - Dysarthria [None]
  - Aphasia [None]
  - Ischaemic stroke [None]
  - Headache [None]
  - Therapy cessation [None]

NARRATIVE: CASE EVENT DATE: 20210117
